FAERS Safety Report 5668833-1 (Version None)
Quarter: 2008Q1

REPORT INFORMATION
  Report Type: 
  Country: None (occurrence: None)
  Receive Date: 20080317
  Receipt Date: 20080215
  Transmission Date: 20080703
  Serious: No
  Sender: FDA-Public Use
  Company Number: US-BAYER-200814698NA

PATIENT
  Age: 29 Year
  Sex: Female
  Weight: 82 kg

DRUGS (3)
  1. YAZ [Suspect]
     Indication: ENDOMETRIOSIS
     Route: 048
     Dates: start: 20080210
  2. ADVIL [Concomitant]
  3. COPPER T IUS [Concomitant]

REACTIONS (1)
  - MUSCLE SPASMS [None]
